FAERS Safety Report 9271133 (Version 1)
Quarter: 2013Q2

REPORT INFORMATION
  Report Type: Report from Study
  Country: BR (occurrence: BR)
  Receive Date: 20130506
  Receipt Date: 20130506
  Transmission Date: 20140414
  Serious: Yes (Death, Hospitalization, Other)
  Sender: FDA-Public Use
  Company Number: PHHY2013BR043140

PATIENT
  Age: 93 Year
  Sex: Female

DRUGS (8)
  1. CATAFLAM [Suspect]
     Indication: MYALGIA
     Dosage: 50 MG, BID
     Route: 048
  2. CATAFLAM EMULGEL [Suspect]
     Indication: MYALGIA
     Dosage: 1 DF, QD
     Route: 061
  3. CATAFLAM [Suspect]
     Indication: MYALGIA
     Dosage: 1 DF, QD
     Route: 061
  4. METFORMIN [Concomitant]
     Indication: DIABETES MELLITUS
     Dosage: 3 OR 4 TABLET, DAILY
     Route: 048
  5. INSULIN [Concomitant]
     Indication: DIABETES MELLITUS
     Dosage: UNK UKN, UNK
  6. OMEPRAZOLE [Concomitant]
     Indication: GASTROINTESTINAL DISORDER
     Dosage: 1 DF, DAILY
     Route: 048
  7. HIDANTAL [Concomitant]
     Dosage: 5 MG, UNK
  8. CITTA [Concomitant]
     Dosage: UNK UKN, UNK

REACTIONS (7)
  - Parkinson^s disease [Fatal]
  - Dementia Alzheimer^s type [Fatal]
  - Respiratory tract infection [Fatal]
  - Acute respiratory failure [Fatal]
  - Heart rate decreased [Unknown]
  - Pneumonia [Unknown]
  - Influenza [Unknown]
